FAERS Safety Report 8029698-6 (Version None)
Quarter: 2012Q1

REPORT INFORMATION
  Report Type: 
  Country: None (occurrence: None)
  Receive Date: 20120109
  Receipt Date: 20120104
  Transmission Date: 20120608
  Serious: Yes (Other)
  Sender: FDA-Public Use
  Company Number: US-PFIZER INC-2012002770

PATIENT
  Sex: Female
  Weight: 108.8 kg

DRUGS (20)
  1. DETROL [Concomitant]
     Indication: HYPERTONIC BLADDER
     Dosage: 2 MG, 2X/DAY
  2. PERCOCET [Concomitant]
     Indication: BACK PAIN
     Dosage: UNK
  3. VALIUM [Concomitant]
     Dosage: UNK
  4. LISINOPRIL [Concomitant]
     Indication: HYPERTENSION
     Dosage: 10 MG
  5. SYNTHROID [Concomitant]
     Indication: HYPERTHYROIDISM
     Dosage: 175 UG, 1X/DAY
  6. ATENOLOL [Concomitant]
     Dosage: 50 MG IN THE MORNING AND 20 MG AT NIGHT
  7. NEURONTIN [Suspect]
     Indication: PAIN
  8. LIPITOR [Concomitant]
     Dosage: UNK
  9. RESTASIS [Concomitant]
     Indication: DRY EYE
     Dosage: UNK
  10. DURAGESIC-100 [Concomitant]
     Indication: ARTHRITIS
  11. CYMBALTA [Concomitant]
     Dosage: UNK, 2X/DAY
  12. PLAVIX [Concomitant]
     Indication: ANTICOAGULANT THERAPY
  13. NEURONTIN [Suspect]
     Indication: DIABETIC NEUROPATHY
     Dosage: UNK, 2X/DAY
     Route: 048
     Dates: start: 20080101, end: 20080101
  14. GLUCOTROL XL [Concomitant]
     Indication: TYPE 2 DIABETES MELLITUS
     Dosage: 20 MG, 2X/DAY
  15. DURAGESIC-100 [Concomitant]
     Indication: DIABETIC NEUROPATHY
     Dosage: 50 MCG PER PATCH, ONE EVERY 72 HOURS
  16. XANAX [Concomitant]
     Indication: ANXIETY
     Dosage: 0.25 MG
  17. PLAVIX [Concomitant]
     Indication: CORONARY ARTERY DISEASE
     Dosage: 75 MG, 1X/DAY
  18. ISOSORBIDE [Concomitant]
     Dosage: 30 MG, 1X/DAY
  19. PREVACID [Concomitant]
     Indication: GASTRIC ULCER
     Dosage: UNK
  20. ALLOPURINOL [Concomitant]
     Indication: NEPHROLITHIASIS
     Dosage: 150 MG

REACTIONS (2)
  - DIZZINESS [None]
  - LOSS OF CONSCIOUSNESS [None]
